FAERS Safety Report 6801568-8 (Version None)
Quarter: 2010Q2

REPORT INFORMATION
  Report Type: 
  Country: None (occurrence: None)
  Receive Date: 20100629
  Receipt Date: 20100621
  Transmission Date: 20101027
  Serious: Yes (Hospitalization, Disabling, Other)
  Sender: FDA-Public Use
  Company Number: CA-ASTRAZENECA-2010SE29284

PATIENT
  Sex: Male
  Weight: 81.6 kg

DRUGS (3)
  1. SEROQUEL XR [Suspect]
     Route: 048
  2. RISPERDAL [Suspect]
     Route: 048
  3. LIPITOR [Concomitant]
     Route: 048

REACTIONS (4)
  - ERECTILE DYSFUNCTION [None]
  - GINGIVAL PAIN [None]
  - PENILE OPERATION [None]
  - PRIAPISM [None]
